FAERS Safety Report 23403782 (Version 1)
Quarter: 2024Q1

REPORT INFORMATION
  Report Type: Spontaneous
  Country: DE (occurrence: DE)
  Receive Date: 20240116
  Receipt Date: 20240116
  Transmission Date: 20240410
  Serious: Yes (Hospitalization, Other)
  Sender: FDA-Public Use
  Company Number: DE-ALKEM LABORATORIES LIMITED-DE-ALKEM-2024-00029

PATIENT
  Sex: Female

DRUGS (24)
  1. EVEROLIMUS [Suspect]
     Active Substance: EVEROLIMUS
     Indication: Renal cell carcinoma
     Dosage: 5 MILLIGRAM
     Route: 065
     Dates: start: 20220224, end: 20230227
  2. EVEROLIMUS [Suspect]
     Active Substance: EVEROLIMUS
     Dosage: 18 MILLIGRAM
     Route: 065
     Dates: start: 20230310, end: 20230403
  3. EVEROLIMUS [Suspect]
     Active Substance: EVEROLIMUS
     Dosage: 18 MILLIGRAM
     Route: 065
     Dates: start: 20230621, end: 20230703
  4. EVEROLIMUS [Suspect]
     Active Substance: EVEROLIMUS
     Dosage: UNK (RECHALLENGE DOSE)
     Route: 065
  5. CABOMETYX [Suspect]
     Active Substance: CABOZANTINIB S-MALATE
     Indication: Renal cell carcinoma
     Dosage: 40 MILLIGRAM, TABLET
     Route: 048
     Dates: start: 20220210
  6. CABOMETYX [Suspect]
     Active Substance: CABOZANTINIB S-MALATE
     Dosage: 20 MILLIGRAM, QD (EVERY 1 DAY), TABLET
     Route: 048
     Dates: start: 20230123
  7. CABOMETYX [Suspect]
     Active Substance: CABOZANTINIB S-MALATE
     Dosage: 40 MILLIGRAM, TABLET
     Route: 048
     Dates: start: 20230807
  8. CABOMETYX [Suspect]
     Active Substance: CABOZANTINIB S-MALATE
     Dosage: 40 MILLIGRAM, QD (EVERY 1 DAY), TABLET
     Route: 048
  9. CABOMETYX [Suspect]
     Active Substance: CABOZANTINIB S-MALATE
     Dosage: 20 MILLIGRAM, TABLET
     Route: 048
  10. CABOMETYX [Suspect]
     Active Substance: CABOZANTINIB S-MALATE
     Dosage: UNK (RECHALLENGE DOSE)
     Route: 065
  11. LENVATINIB [Suspect]
     Active Substance: LENVATINIB
     Indication: Renal cell carcinoma
     Dosage: 18 MILLIGRAM
     Route: 065
     Dates: start: 20220224, end: 20230227
  12. LENVATINIB [Suspect]
     Active Substance: LENVATINIB
     Dosage: 18 MILLIGRAM
     Route: 065
     Dates: start: 20230310, end: 20230403
  13. LENVATINIB [Suspect]
     Active Substance: LENVATINIB
     Dosage: 18 MILLIGRAM
     Route: 065
     Dates: start: 20230621, end: 20230703
  14. LENVATINIB [Suspect]
     Active Substance: LENVATINIB
     Dosage: UNK (RECHALLENGE DOSE)
     Route: 065
  15. NIVOLUMAB [Suspect]
     Active Substance: NIVOLUMAB
     Indication: Renal cell carcinoma
     Dosage: 480 MILLIGRAM (EVERY 4 WEEK)
     Route: 065
     Dates: start: 20220220
  16. NIVOLUMAB [Suspect]
     Active Substance: NIVOLUMAB
     Dosage: 480 MILLIGRAM
     Route: 065
     Dates: start: 20221121
  17. NIVOLUMAB [Suspect]
     Active Substance: NIVOLUMAB
     Dosage: 480 MILLIGRAM
     Route: 065
     Dates: start: 20221219
  18. NIVOLUMAB [Suspect]
     Active Substance: NIVOLUMAB
     Dosage: 480 MILLIGRAM
     Route: 065
     Dates: start: 20230116
  19. NIVOLUMAB [Suspect]
     Active Substance: NIVOLUMAB
     Dosage: UNK (RECHALLENGE DOSE)
     Route: 065
  20. AMLODIPINE [Concomitant]
     Active Substance: AMLODIPINE BESYLATE
     Indication: Product used for unknown indication
     Dosage: UNK
     Route: 065
  21. CANDESARTAN [Concomitant]
     Active Substance: CANDESARTAN
     Indication: Product used for unknown indication
     Dosage: UNK
     Route: 065
  22. DOXAZOSIN [Concomitant]
     Active Substance: DOXAZOSIN MESYLATE
     Indication: Product used for unknown indication
     Dosage: UNK
     Route: 065
  23. LEVOTHYROXINE SODIUM [Concomitant]
     Active Substance: LEVOTHYROXINE SODIUM
     Indication: Product used for unknown indication
     Dosage: UNK
     Route: 065
  24. METOPROLOL [Concomitant]
     Active Substance: METOPROLOL
     Indication: Product used for unknown indication
     Dosage: UNK
     Route: 065

REACTIONS (9)
  - General physical health deterioration [Unknown]
  - Blood creatinine increased [Unknown]
  - Dizziness [Unknown]
  - Hyponatraemia [Unknown]
  - Infection [Unknown]
  - Urinary tract infection [Unknown]
  - Malignant neoplasm progression [Unknown]
  - Blood thyroid stimulating hormone increased [Unknown]
  - Diarrhoea [Unknown]
